FAERS Safety Report 21570107 (Version 1)
Quarter: 2022Q4

REPORT INFORMATION
  Report Type: Spontaneous
  Country: US (occurrence: US)
  Receive Date: 20221109
  Receipt Date: 20221109
  Transmission Date: 20230113
  Serious: No
  Sender: FDA-Public Use
  Company Number: US-BIOGEN-2022BI01166214

PATIENT
  Sex: Male

DRUGS (1)
  1. SPINRAZA [Suspect]
     Active Substance: NUSINERSEN
     Indication: Spinal muscular atrophy
     Dosage: PATIENT RECEIVED 13 INJECTIONS OF SPINRAZA.?LAST INJECTION IS ON 19 OCT 2022
     Route: 050

REACTIONS (1)
  - Post procedural complication [Unknown]
